FAERS Safety Report 6677481-6 (Version None)
Quarter: 2010Q2

REPORT INFORMATION
  Report Type: 
  Country: None (occurrence: None)
  Receive Date: 20100412
  Receipt Date: 20100330
  Transmission Date: 20101027
  Serious: No
  Sender: FDA-Public Use
  Company Number: B0641121A

PATIENT
  Sex: Female

DRUGS (1)
  1. VALTREX [Suspect]
     Indication: ANTIVIRAL TREATMENT
     Dosage: 1000MG TWICE PER DAY
     Route: 048
     Dates: start: 20100306, end: 20100306

REACTIONS (2)
  - ANGIOEDEMA [None]
  - CHEILITIS [None]
